FAERS Safety Report 11438435 (Version 1)
Quarter: 2015Q3

REPORT INFORMATION
  Report Type: Spontaneous
  Country: US (occurrence: US)
  Receive Date: 20150901
  Receipt Date: 20150901
  Transmission Date: 20151125
  Serious: Yes (Other)
  Sender: FDA-Public Use
  Company Number: US-ROCHE-1067712

PATIENT
  Sex: Male

DRUGS (4)
  1. PEGASYS [Suspect]
     Active Substance: PEGINTERFERON ALFA-2A
     Indication: HEPATITIS C
     Route: 065
     Dates: start: 20111202
  2. RIBAVIRIN. [Suspect]
     Active Substance: RIBAVIRIN
     Indication: HEPATITIS C
     Route: 065
     Dates: start: 20111202
  3. INCIVEK [Suspect]
     Active Substance: TELAPREVIR
     Indication: HEPATITIS C
     Route: 065
     Dates: start: 20111202
  4. RIBAVIRIN. [Suspect]
     Active Substance: RIBAVIRIN
     Route: 065

REACTIONS (5)
  - Hepatic cirrhosis [Unknown]
  - Platelet count decreased [Unknown]
  - Hepatic cancer [Unknown]
  - Feeling abnormal [Unknown]
  - Weight decreased [Unknown]
